FAERS Safety Report 25284542 (Version 1)
Quarter: 2025Q2

REPORT INFORMATION
  Report Type: Spontaneous
  Country: CN (occurrence: CN)
  Receive Date: 20250508
  Receipt Date: 20250508
  Transmission Date: 20250716
  Serious: Yes (Hospitalization)
  Sender: ELI LILLY AND COMPANY
  Company Number: CN-ELI_LILLY_AND_COMPANY-CN202504023890

PATIENT
  Age: 70 Year
  Sex: Female

DRUGS (2)
  1. IXEKIZUMAB [Suspect]
     Active Substance: IXEKIZUMAB
     Indication: Oligoarthritis
     Dosage: 80 MG, MONTHLY (1/M)
     Route: 065
  2. LEFLUNOMIDE [Suspect]
     Active Substance: LEFLUNOMIDE
     Indication: Oligoarthritis
     Dosage: 20 MG, DAILY
     Route: 065

REACTIONS (1)
  - Pyoderma gangrenosum [Recovered/Resolved]
